FAERS Safety Report 23067065 (Version 2)
Quarter: 2023Q4

REPORT INFORMATION
  Report Type: Spontaneous
  Country: US (occurrence: None)
  Receive Date: 20231016
  Receipt Date: 20231212
  Transmission Date: 20240109
  Serious: No
  Sender: FDA-Public Use
  Company Number: 2023A220817

PATIENT

DRUGS (1)
  1. SYMBICORT [Suspect]
     Active Substance: BUDESONIDE\FORMOTEROL FUMARATE DIHYDRATE
     Dosage: 80 UG, UNKNOWN UNKNOWN
     Route: 055

REACTIONS (11)
  - Asthma [Unknown]
  - Overdose [Unknown]
  - Product taste abnormal [Unknown]
  - Device use issue [Unknown]
  - Drug ineffective [Unknown]
  - Intentional product misuse [Unknown]
  - Device delivery system issue [Unknown]
  - Incorrect dose administered by device [Unknown]
  - Extra dose administered [Unknown]
  - Off label use [Unknown]
  - Wrong technique in device usage process [Unknown]
